FAERS Safety Report 4515602-1 (Version None)
Quarter: 2004Q3

REPORT INFORMATION
  Report Type: 
  Country: None (occurrence: None)
  Receive Date: 20040930
  Receipt Date: 20030903
  Transmission Date: 20050211
  Serious: Yes (Other)
  Sender: FDA-Public Use
  Company Number: US-JNJFOC-20030801459

PATIENT
  Age: 51 Year
  Sex: Female
  Weight: 65.7716 kg

DRUGS (6)
  1. DITROPAN XL [Suspect]
     Indication: HYPERTONIC BLADDER
     Dosage: 10 MG, 1 IN 1 DAY, ORAL
     Route: 048
     Dates: start: 20030623, end: 20030731
  2. ESTRATEST [Concomitant]
  3. ZYRTEC [Concomitant]
  4. DESRYL (TRAZODONE) [Concomitant]
  5. LEXAPRO [Concomitant]
  6. SEROQUEL (QUETIPINE FUMARATE) [Concomitant]

REACTIONS (4)
  - DRY MOUTH [None]
  - DYSPNOEA [None]
  - HEAT STROKE [None]
  - LOSS OF CONSCIOUSNESS [None]
